FAERS Safety Report 10021417 (Version 1)
Quarter: 2014Q1

REPORT INFORMATION
  Report Type: Spontaneous
  Country: US (occurrence: None)
  Receive Date: 20140318
  Receipt Date: 20140318
  Transmission Date: 20141002
  Serious: Yes (Other)
  Sender: FDA-Public Use
  Company Number: None

PATIENT
  Age: 49 Year
  Sex: Male
  Weight: 74.84 kg

DRUGS (2)
  1. CIPROFLOXACIN 500 MG COBALT [Suspect]
     Indication: DIVERTICULITIS
     Route: 048
     Dates: start: 20140218, end: 20140302
  2. METRONIDAZOLE 500 MG WATSON [Suspect]
     Indication: DIVERTICULITIS
     Route: 048
     Dates: start: 20140218, end: 20140302

REACTIONS (2)
  - Burning sensation [None]
  - Muscle spasms [None]
